FAERS Safety Report 7732769-2 (Version None)
Quarter: 2011Q3

REPORT INFORMATION
  Report Type: 
  Country: None (occurrence: None)
  Receive Date: 20110823
  Receipt Date: 20110818
  Transmission Date: 20111222
  Serious: Yes (Other)
  Sender: FDA-Public Use
  Company Number: 2009020447

PATIENT
  Age: 19 Year
  Sex: Female

DRUGS (1)
  1. BERINERT [Suspect]
     Indication: HEREDITARY ANGIOEDEMA
     Dosage: 500 IU, TWO INFUSIONS PER WEEK; 500 U PER INFUSION (10.6 U / KG BW)
     Dates: start: 20071201

REACTIONS (1)
  - INHIBITING ANTIBODIES [None]
